FAERS Safety Report 10367756 (Version 2)
Quarter: 2014Q3

REPORT INFORMATION
  Report Type: Spontaneous
  Country: BR (occurrence: BR)
  Receive Date: 20140807
  Receipt Date: 20140814
  Transmission Date: 20150326
  Serious: Yes (Other)
  Sender: FDA-Public Use
  Company Number: BR-BAXTER-2014BAX045006

PATIENT
  Age: 51 Year
  Sex: Male
  Weight: 65 kg

DRUGS (4)
  1. ELECTROLYTE SOLUTIONS [Suspect]
     Active Substance: UNSPECIFIED INGREDIENT
     Indication: RENAL FAILURE ACUTE
     Route: 065
     Dates: start: 20140614, end: 20140705
  2. CALCIUM GLUCONATE. [Suspect]
     Active Substance: CALCIUM GLUCONATE
     Indication: RENAL FAILURE ACUTE
     Route: 065
     Dates: start: 20140614, end: 20140705
  3. CLORETO DE S?DIO - BAXTER [Suspect]
     Active Substance: SODIUM CHLORIDE
     Indication: PRODUCT USED FOR UNKNOWN INDICATION
     Route: 065
  4. CITRATE [Suspect]
     Active Substance: CITRIC ACID MONOHYDRATE
     Indication: RENAL FAILURE ACUTE
     Route: 065
     Dates: start: 20140614, end: 20140705

REACTIONS (2)
  - Device breakage [Unknown]
  - Haemorrhage [Unknown]

NARRATIVE: CASE EVENT DATE: 20140705
